FAERS Safety Report 5812586-0 (Version None)
Quarter: 2008Q3

REPORT INFORMATION
  Report Type: 
  Country: None (occurrence: None)
  Receive Date: 20080717
  Receipt Date: 20080707
  Transmission Date: 20090109
  Serious: Yes (Hospitalization, Other)
  Sender: FDA-Public Use
  Company Number: NL-ALLERGAN-0805272US

PATIENT
  Sex: Female

DRUGS (1)
  1. BOTOX [Suspect]
     Indication: DROOLING
     Dosage: 100 UNITS, SINGLE
     Route: 050

REACTIONS (1)
  - DYSPHAGIA [None]
